FAERS Safety Report 9358047 (Version 2)
Quarter: 2013Q4

REPORT INFORMATION
  Report Type: Spontaneous
  Country: ES (occurrence: ES)
  Receive Date: 20130620
  Receipt Date: 20131001
  Transmission Date: 20140711
  Serious: Yes (Hospitalization)
  Sender: FDA-Public Use
  Company Number: ES-009507513-1306ESP003745

PATIENT
  Sex: Male

DRUGS (7)
  1. VICTRELIS [Suspect]
     Indication: HEPATITIS C
     Route: 048
  2. XOLAIR [Suspect]
     Indication: OCCUPATIONAL ASTHMA
     Dosage: UNK
     Route: 058
     Dates: start: 2011
  3. XOLAIR [Suspect]
     Indication: OFF LABEL USE
     Dosage: 450 MG Q4W
     Route: 058
     Dates: start: 20111213
  4. XOLAIR [Suspect]
     Dosage: UNK
     Route: 058
     Dates: end: 20130312
  5. RIBAVIRIN [Suspect]
     Indication: HEPATITIS C
     Route: 048
  6. PEGINTERFERON ALFA-2B [Suspect]
     Route: 048
  7. INTERFERON (UNSPECIFIED) [Concomitant]

REACTIONS (3)
  - Cytomegalovirus infection [Unknown]
  - Herpes virus infection [Not Recovered/Not Resolved]
  - Respiratory disorder [Not Recovered/Not Resolved]
